FAERS Safety Report 5457048-8 (Version None)
Quarter: 2007Q3

REPORT INFORMATION
  Report Type: 
  Country: None (occurrence: None)
  Receive Date: 20070918
  Receipt Date: 20061221
  Transmission Date: 20080115
  Serious: Yes (Other)
  Sender: FDA-Public Use
  Company Number: US-ASTRAZENECA-2006UW28413

PATIENT
  Age: 9 Year
  Sex: Male

DRUGS (4)
  1. SEROQUEL [Suspect]
     Indication: BIPOLAR DISORDER
     Route: 048
     Dates: start: 20061213, end: 20061214
  2. SEROQUEL [Suspect]
     Route: 048
     Dates: start: 20061215, end: 20061216
  3. GEODON [Concomitant]
     Dates: end: 20061212
  4. LITHIUM CARBONATE [Concomitant]
     Dates: end: 20061212

REACTIONS (1)
  - HYPERSENSITIVITY [None]
